FAERS Safety Report 5053039-X (Version None)
Quarter: 2006Q3

REPORT INFORMATION
  Report Type: 
  Country: None (occurrence: None)
  Receive Date: 20060712
  Receipt Date: 20060701
  Transmission Date: 20061208
  Serious: Yes (Other)
  Sender: FDA-Public Use
  Company Number: 2006050132

PATIENT
  Age: 89 Year
  Sex: Female
  Weight: 58.0604 kg

DRUGS (9)
  1. CADUET [Suspect]
     Dosage: 10/5 MG    ALMOST 2 YEARS AGO -ONGOING
  2. MAXZIDE [Concomitant]
  3. IBANDRONATE SODIUM (IBANDRONATE SODIUM) [Concomitant]
  4. TOPROL-XL [Concomitant]
  5. ASPIRIN [Concomitant]
  6. CALCIUM (CALCIUM) [Concomitant]
  7. ARICEPT [Concomitant]
  8. CENTRUM SILVER (ASCORBIC ACID, CALCIUM, MINERALS NOS, RETINOL, TOCOPHE [Concomitant]
  9. LUMIGAN [Concomitant]

REACTIONS (4)
  - ABDOMINAL PAIN UPPER [None]
  - FLATULENCE [None]
  - SINUS HEADACHE [None]
  - TEMPORAL ARTERITIS [None]
